FAERS Safety Report 7184702-2 (Version None)
Quarter: 2010Q4

REPORT INFORMATION
  Report Type: 
  Country: None (occurrence: None)
  Receive Date: 20101123
  Receipt Date: 20100915
  Transmission Date: 20110411
  Serious: No
  Sender: FDA-Public Use
  Company Number: 018857

PATIENT
  Sex: Male

DRUGS (6)
  1. CIMZIA [Suspect]
     Indication: CROHN'S DISEASE
     Dosage: (400 MG 1X/MONTH SUBCUTANEOUS)
     Route: 058
  2. FLAGYL [Concomitant]
  3. PRENATAL VITAMINS /01549301/ [Concomitant]
  4. VITAMIN B12 /00056201/ [Concomitant]
  5. ACIPHEX [Concomitant]
  6. CIPRO [Concomitant]

REACTIONS (2)
  - ASTHENIA [None]
  - DIARRHOEA [None]
